FAERS Safety Report 4973855-X (Version None)
Quarter: 2006Q2

REPORT INFORMATION
  Report Type: 
  Country: None (occurrence: None)
  Receive Date: 20060415
  Receipt Date: 19981008
  Transmission Date: 20061013
  Serious: Yes (Death, Life-Threatening, Hospitalization, Disabling, Other)
  Sender: FDA-Public Use
  Company Number: US-ABBOTT-98P-163-0162192-00

PATIENT
  Sex: Female
  Weight: 114 kg

DRUGS (5)
  1. SIBUTRAMINE [Suspect]
     Indication: WEIGHT CONTROL
     Route: 048
     Dates: start: 19980906, end: 19981004
  2. PROPULSID [Suspect]
     Indication: GASTROOESOPHAGEAL REFLUX DISEASE
     Route: 048
     Dates: start: 19980801, end: 19981004
  3. PRILOSEC [Suspect]
     Indication: DRUG USE FOR UNKNOWN INDICATION
     Route: 048
     Dates: start: 19980801, end: 19981004
  4. POTASSIUM [Concomitant]
     Indication: MINERAL SUPPLEMENTATION
     Route: 048
     Dates: end: 19981004
  5. LASIX [Concomitant]
     Indication: DIURETIC THERAPY
     Route: 048
     Dates: end: 19981004

REACTIONS (10)
  - CARDIAC ARREST [None]
  - COMA [None]
  - DEATH [None]
  - DRUG INTERACTION [None]
  - NAUSEA [None]
  - PNEUMONIA [None]
  - SYNCOPE [None]
  - TORSADE DE POINTES [None]
  - VENTRICULAR FIBRILLATION [None]
  - VENTRICULAR TACHYCARDIA [None]
